APPROVED DRUG PRODUCT: PROMETHAZINE HYDROCHLORIDE
Active Ingredient: PROMETHAZINE HYDROCHLORIDE
Strength: 25MG
Dosage Form/Route: TABLET;ORAL
Application: A084214 | Product #002
Applicant: IMPAX LABORATORIES INC
Approved: Jul 7, 1982 | RLD: No | RS: No | Type: DISCN